FAERS Safety Report 17572268 (Version 1)
Quarter: 2020Q1

REPORT INFORMATION
  Report Type: Spontaneous
  Country: US (occurrence: US)
  Receive Date: 20200317
  Receipt Date: 20200317
  Transmission Date: 20200409
  Serious: Yes (Hospitalization)
  Sender: FDA-Public Use
  Company Number: None

PATIENT
  Age: 25 Year
  Sex: Male

DRUGS (16)
  1. AMBIEN [Concomitant]
     Active Substance: ZOLPIDEM TARTRATE
  2. OSELTAMVIR [Concomitant]
     Active Substance: OSELTAMIVIR
  3. ZOLPIDEM [Concomitant]
     Active Substance: ZOLPIDEM TARTRATE
  4. CIPROFLOXACIN. [Concomitant]
     Active Substance: CIPROFLOXACIN
  5. IBUPROFEN. [Concomitant]
     Active Substance: IBUPROFEN
  6. DRONABINOL. [Concomitant]
     Active Substance: DRONABINOL
  7. PROAIR HFA [Concomitant]
     Active Substance: ALBUTEROL SULFATE
  8. PULMOZYME [Concomitant]
     Active Substance: DORNASE ALFA
  9. AQUADEKS [Concomitant]
     Active Substance: MINERALS\VITAMINS
  10. ADVAIR DISKU AER [Concomitant]
  11. POLYETH GLYC [Concomitant]
     Active Substance: POLYETHYLENE GLYCOLS
  12. FLUTICASONE. [Concomitant]
     Active Substance: FLUTICASONE
  13. PRILOSEC [Suspect]
     Active Substance: OMEPRAZOLE MAGNESIUM
  14. ZENPEP [Concomitant]
     Active Substance: PANCRELIPASE AMYLASE\PANCRELIPASE LIPASE\PANCRELIPASE PROTEASE
  15. PULMOZYME [Suspect]
     Active Substance: DORNASE ALFA
     Indication: CYSTIC FIBROSIS
     Route: 055
     Dates: start: 20170802
  16. OMEPRAZOLE. [Concomitant]
     Active Substance: OMEPRAZOLE

REACTIONS (1)
  - Influenza [None]

NARRATIVE: CASE EVENT DATE: 20200226
